FAERS Safety Report 10554687 (Version 2)
Quarter: 2014Q4

REPORT INFORMATION
  Report Type: Spontaneous
  Country: JP (occurrence: JP)
  Receive Date: 20141030
  Receipt Date: 20141105
  Transmission Date: 20150529
  Serious: Yes (Other)
  Sender: FDA-Public Use
  Company Number: JP-PFIZER INC-2014298643

PATIENT
  Sex: Male

DRUGS (2)
  1. ALDACTONE [Suspect]
     Active Substance: SPIRONOLACTONE
     Indication: CARDIAC FAILURE
     Dosage: 12.5 MG, ALTERNATE DAY
     Route: 048
     Dates: end: 20141026
  2. ALDACTONE [Suspect]
     Active Substance: SPIRONOLACTONE
     Dosage: 25 MG, DAILY
     Route: 048
     Dates: start: 20141027

REACTIONS (5)
  - Platelet count decreased [Recovering/Resolving]
  - Limb operation [Unknown]
  - Weight increased [Unknown]
  - White blood cell count decreased [Unknown]
  - Renal impairment [Unknown]
